FAERS Safety Report 6375160-6 (Version None)
Quarter: 2009Q3

REPORT INFORMATION
  Report Type: 
  Country: None (occurrence: None)
  Receive Date: 20090922
  Receipt Date: 20090922
  Transmission Date: 20100115
  Serious: No
  Sender: FDA-Public Use
  Company Number: None

PATIENT
  Sex: Female
  Weight: 75 kg

DRUGS (1)
  1. YASMIN [Suspect]
     Indication: CONTRACEPTION
     Dosage: 3-0.3 MG 1/DAY 047
     Dates: start: 20090723, end: 20090917

REACTIONS (10)
  - ALOPECIA [None]
  - ANGER [None]
  - ANXIETY [None]
  - BREAST PAIN [None]
  - DEPRESSION [None]
  - DIZZINESS [None]
  - INSOMNIA [None]
  - LOSS OF LIBIDO [None]
  - MIGRAINE [None]
  - NAUSEA [None]
